FAERS Safety Report 5267413-X (Version None)
Quarter: 2007Q1

REPORT INFORMATION
  Report Type: 
  Country: None (occurrence: None)
  Receive Date: 20070316
  Receipt Date: 20070309
  Transmission Date: 20070707
  Serious: Yes (Hospitalization)
  Sender: FDA-Public Use
  Company Number: JP-ROCHE-477522

PATIENT
  Age: 71 Year
  Sex: Male
  Weight: 65 kg

DRUGS (16)
  1. CAPECITABINE [Suspect]
     Indication: GASTRIC CANCER
     Dosage: GIVEN FOR TWO WEEKS FOLLOWED BY ONE WEEK REST.
     Route: 048
     Dates: start: 20061208
  2. TRASTUZUMAB [Suspect]
     Indication: GASTRIC CANCER
     Dosage: LOADING DOSE
     Route: 042
     Dates: start: 20061208
  3. TRASTUZUMAB [Suspect]
     Dosage: MAINTENANCE DOSE 6 MG/KG.
     Route: 042
     Dates: start: 20061229
  4. CISPLATIN [Suspect]
     Indication: GASTRIC CANCER
     Route: 042
     Dates: start: 20061208
  5. FERROUS CITRATE [Concomitant]
     Dates: start: 20061115, end: 20070109
  6. ZOLPIDEM TARTRATE [Concomitant]
     Dates: start: 20061201, end: 20070109
  7. 1 CONCOMITANT DRUG [Concomitant]
     Indication: HAEMORRHOIDS
     Dates: start: 20061213, end: 20070109
  8. DIFLUCORTOLONE VALERATE [Concomitant]
     Dosage: DRUG NAME WAS REPORTED AS DIFLUCORTOLONE VALERATE / LIDOCAINE.
     Dates: start: 20061224, end: 20070109
  9. DICYCLOMINE HCL INJ [Concomitant]
     Dates: start: 19760615, end: 20070219
  10. CETRAXATE HYDROCHLORIDE [Concomitant]
     Dates: start: 19760615, end: 20070219
  11. DOMPERIDON [Concomitant]
     Dates: start: 20070210, end: 20070219
  12. DIFLUCORTOLONE VALERATE [Concomitant]
     Dates: start: 20061224, end: 20070219
  13. ENALAPRIL MALEATE [Concomitant]
     Dates: start: 19760615, end: 20070219
  14. TOCOPHEROL CONCENTRATE CAP [Concomitant]
     Dates: start: 19760615, end: 20070219
  15. FERROUS CITRATE [Concomitant]
     Dates: start: 20070129, end: 20070219
  16. ZOLPIDEM [Concomitant]
     Dates: start: 20061125, end: 20070219

REACTIONS (3)
  - GASTROINTESTINAL HAEMORRHAGE [None]
  - GOUT [None]
  - PYREXIA [None]
